FAERS Safety Report 15634945 (Version 5)
Quarter: 2019Q1

REPORT INFORMATION
  Report Type: Report from Study
  Country: IN (occurrence: IN)
  Receive Date: 20181119
  Receipt Date: 20190312
  Transmission Date: 20190417
  Serious: Yes (Hospitalization, Other)
  Sender: FDA-Public Use
  Company Number: IN-BAYER-2018-209883

PATIENT
  Age: 77 Year
  Sex: Male

DRUGS (1)
  1. NEXAVAR [Suspect]
     Active Substance: SORAFENIB
     Indication: HEPATOCELLULAR CARCINOMA
     Dosage: DAILY DOSE 800 MG
     Route: 048
     Dates: start: 20180412, end: 201901

REACTIONS (10)
  - Intra-abdominal fluid collection [None]
  - Throat irritation [Unknown]
  - Malaise [None]
  - Drug ineffective [None]
  - Amnesia [None]
  - Hepatic function abnormal [None]
  - Gastric disorder [Not Recovered/Not Resolved]
  - Hospitalisation [None]
  - Dysphagia [Unknown]
  - Rash [Recovered/Resolved]

NARRATIVE: CASE EVENT DATE: 2018
